FAERS Safety Report 18086608 (Version 2)
Quarter: 2020Q3

REPORT INFORMATION
  Report Type: Report from Study
  Country: ES (occurrence: ES)
  Receive Date: 20200729
  Receipt Date: 20200807
  Transmission Date: 20201103
  Serious: Yes (Death, Hospitalization)
  Sender: FDA-Public Use
  Company Number: NVSC2020ES207113

PATIENT
  Age: 84 Year
  Sex: Male
  Weight: 80.7 kg

DRUGS (28)
  1. ZARZIO [Concomitant]
     Active Substance: FILGRASTIM
     Indication: NEUTROPENIA
     Dosage: UNK
     Route: 065
     Dates: start: 20200126
  2. DIGOXINE [Concomitant]
     Active Substance: DIGOXIN
     Indication: PANCYTOPENIA
     Dosage: UNK
     Route: 065
     Dates: start: 20200129, end: 20200129
  3. METAMIZOLE [Concomitant]
     Active Substance: METAMIZOLE
     Indication: ARTHRALGIA
     Dosage: UNK
     Route: 065
     Dates: start: 20190901
  4. MEROPENEM. [Concomitant]
     Active Substance: MEROPENEM
     Indication: PANCYTOPENIA
     Dosage: UNK
     Route: 065
     Dates: start: 20200129
  5. SUPLECAL [Concomitant]
     Indication: PANCYTOPENIA
     Dosage: UNK
     Route: 065
     Dates: start: 20200130, end: 20200130
  6. OMEPRAZOLE. [Concomitant]
     Active Substance: OMEPRAZOLE
     Indication: DIARRHOEA
     Dosage: UNK
     Route: 065
     Dates: start: 20200131
  7. MORPHINE [Concomitant]
     Active Substance: MORPHINE
     Indication: PANCYTOPENIA
     Dosage: UNK
     Route: 065
     Dates: start: 20200129, end: 20200129
  8. TAMSULOSIN [Concomitant]
     Active Substance: TAMSULOSIN
     Indication: BENIGN PROSTATIC HYPERPLASIA
     Dosage: UNK
     Route: 065
     Dates: start: 20160101
  9. FOLIC ACID. [Concomitant]
     Active Substance: FOLIC ACID
     Indication: PROPHYLAXIS
     Dosage: UNK
     Route: 065
     Dates: start: 20191009
  10. COMPARATOR PEMBROLIZUMAB [Suspect]
     Active Substance: PEMBROLIZUMAB
     Indication: NON-SMALL CELL LUNG CANCER
     Dosage: UNK
     Route: 042
     Dates: start: 20191023
  11. PEMETREXED. [Suspect]
     Active Substance: PEMETREXED
     Indication: NON-SMALL CELL LUNG CANCER
     Dosage: UNK
     Route: 042
     Dates: start: 20191023
  12. LINEZOLID. [Concomitant]
     Active Substance: LINEZOLID
     Indication: PANCYTOPENIA
     Dosage: UNK
     Route: 065
     Dates: start: 20200129
  13. LUMIGAN [Concomitant]
     Active Substance: BIMATOPROST
     Indication: OCULAR HYPERTENSION
     Dosage: UNK
     Route: 065
     Dates: start: 20140101
  14. OPTOVIT E [Concomitant]
     Indication: PROPHYLAXIS
     Dosage: UNK
     Route: 065
     Dates: start: 20191009
  15. PLACEBO [Suspect]
     Active Substance: UNSPECIFIED INGREDIENT
     Indication: NON-SMALL CELL LUNG CANCER
     Dosage: UNK
     Route: 058
     Dates: start: 20191023
  16. CIPROFLOXACIN. [Concomitant]
     Active Substance: CIPROFLOXACIN
     Indication: PANCYTOPENIA
     Dosage: UNK
     Route: 065
     Dates: start: 20200126, end: 20200129
  17. PARACETAMOL [Concomitant]
     Active Substance: ACETAMINOPHEN
     Indication: PAIN
     Dosage: UNK
     Route: 065
     Dates: start: 20191206
  18. G?CSF [Concomitant]
     Active Substance: GRANULOCYTE COLONY-STIMULATING FACTOR NOS
     Indication: FEBRILE NEUTROPENIA
     Dosage: UNK
     Route: 065
     Dates: start: 20191127
  19. NATECAL D [Concomitant]
     Active Substance: CALCIUM CARBONATE\CHOLECALCIFEROL
     Indication: HYPOCALCAEMIA
     Dosage: UNK
     Route: 065
     Dates: start: 20200108
  20. BUTYLSCOPOLAMINE [Concomitant]
     Active Substance: BUTYLSCOPOLAMINE
     Indication: PANCYTOPENIA
     Dosage: UNK
     Route: 065
     Dates: start: 20200128, end: 20200128
  21. LOSARTAN. [Concomitant]
     Active Substance: LOSARTAN
     Indication: HYPERTENSION
     Dosage: UNK
     Route: 065
     Dates: start: 20090101
  22. ENOXAPARIN [Concomitant]
     Active Substance: ENOXAPARIN
     Indication: THROMBOSIS PROPHYLAXIS
     Dosage: UNK
     Route: 065
     Dates: start: 20191206
  23. COMPARATOR CARBOPLATIN [Suspect]
     Active Substance: CARBOPLATIN
     Indication: NON-SMALL CELL LUNG CANCER
     Dosage: UNK
     Route: 042
     Dates: start: 20191023
  24. PARACETAMOL [Concomitant]
     Active Substance: ACETAMINOPHEN
     Indication: ARTHRALGIA
     Dosage: UNK
     Route: 065
     Dates: start: 20190101
  25. MAGNESIUM [Concomitant]
     Active Substance: MAGNESIUM
     Indication: HYPOMAGNESAEMIA
     Dosage: UNK
     Route: 065
     Dates: start: 20200108
  26. AMOXICILLIN/CLAVULANIC ACID [Concomitant]
     Active Substance: AMOXICILLIN\CLAVULANIC ACID
     Indication: PANCYTOPENIA
     Dosage: UNK
     Route: 065
     Dates: start: 20200126, end: 20200129
  27. OMEPRAZOLE. [Concomitant]
     Active Substance: OMEPRAZOLE
     Indication: PANCYTOPENIA
  28. SULMETIN [Concomitant]
     Indication: PANCYTOPENIA
     Dosage: UNK
     Route: 065
     Dates: start: 20200130, end: 20200130

REACTIONS (1)
  - Pancytopenia [Fatal]

NARRATIVE: CASE EVENT DATE: 20200206
